FAERS Safety Report 7422674-3 (Version None)
Quarter: 2011Q2

REPORT INFORMATION
  Report Type: 
  Country: None (occurrence: None)
  Receive Date: 20110419
  Receipt Date: 20110407
  Transmission Date: 20111010
  Serious: Yes (Other)
  Sender: FDA-Public Use
  Company Number: SE-ELI_LILLY_AND_COMPANY-SE201104002962

PATIENT
  Sex: Female

DRUGS (3)
  1. MIANSERIN [Concomitant]
     Dosage: UNK
     Dates: start: 20110101
  2. FONTEX [Suspect]
     Indication: MAJOR DEPRESSION
     Dosage: 20 MG, UNK
     Dates: start: 19970801
  3. ANAFRANIL [Concomitant]

REACTIONS (1)
  - CARCINOID TUMOUR OF THE GASTROINTESTINAL TRACT [None]
